FAERS Safety Report 12299425 (Version 1)
Quarter: 2016Q2

REPORT INFORMATION
  Report Type: Spontaneous
  Country: US (occurrence: None)
  Receive Date: 20160422
  Receipt Date: 20160422
  Transmission Date: 20160815
  Serious: No
  Sender: FDA-Public Use
  Company Number: None

PATIENT
  Age: 68 Year
  Sex: Male

DRUGS (9)
  1. ACETAMINOPHNE/HYDROCODONE [Concomitant]
     Active Substance: ACETAMINOPHEN\HYDROCODONE
  2. ASPIRIN. [Concomitant]
     Active Substance: ASPIRIN
  3. VIDAZA [Concomitant]
     Active Substance: AZACITIDINE
  4. NITROGLYCRN SPR [Concomitant]
  5. LOSARTAN POT [Concomitant]
     Active Substance: LOSARTAN POTASSIUM
  6. METOPROLOL. [Concomitant]
     Active Substance: METOPROLOL
  7. ZYRTEC ALLGY [Concomitant]
  8. EXJADE [Suspect]
     Active Substance: DEFERASIROX
     Indication: MYELODYSPLASTIC SYNDROME
     Route: 048
     Dates: start: 20160226
  9. COENZYME Q10 [Concomitant]
     Active Substance: UBIDECARENONE

REACTIONS (1)
  - Diarrhoea [None]

NARRATIVE: CASE EVENT DATE: 20160226
